FAERS Safety Report 17636711 (Version 1)
Quarter: 2020Q2

REPORT INFORMATION
  Report Type: Spontaneous
  Country: US (occurrence: US)
  Receive Date: 20200403
  Receipt Date: 20200403
  Transmission Date: 20200713
  Serious: No
  Sender: FDA-Public Use
  Company Number: None

PATIENT
  Age: 74 Year
  Sex: Female

DRUGS (1)
  1. TOBI PODHALER [Suspect]
     Active Substance: TOBRAMYCIN
     Route: 048
     Dates: start: 201904

REACTIONS (3)
  - Dysphonia [None]
  - Dyspnoea [None]
  - Dry throat [None]

NARRATIVE: CASE EVENT DATE: 20200403
